FAERS Safety Report 13070250 (Version 2)
Quarter: 2017Q1

REPORT INFORMATION
  Report Type: Spontaneous
  Country: US (occurrence: US)
  Receive Date: 20161228
  Receipt Date: 20170106
  Transmission Date: 20170428
  Serious: Yes (Hospitalization)
  Sender: FDA-Public Use
  Company Number: US-SUPERNUS PHARMACEUTICALS, INC.-2016SUP00201

PATIENT
  Age: 58 Year
  Sex: Female
  Weight: 90.7 kg

DRUGS (7)
  1. OXTELLAR XR [Suspect]
     Active Substance: OXCARBAZEPINE
     Indication: TRIGEMINAL NEURALGIA
     Dosage: 600 MG, 1X/DAY
     Route: 048
     Dates: start: 201606, end: 201607
  2. IBUPROFEN. [Concomitant]
     Active Substance: IBUPROFEN
     Dosage: UNK, AS NEEDED
  3. OXTELLAR XR [Suspect]
     Active Substance: OXCARBAZEPINE
     Dosage: 300 MG, 1X/DAY
     Route: 048
     Dates: start: 20161214
  4. OXTELLAR XR [Suspect]
     Active Substance: OXCARBAZEPINE
     Indication: TRIGEMINAL NEURALGIA
     Dosage: 300 MG, 2X/DAY
     Route: 048
     Dates: start: 201607, end: 20161214
  5. VITAMIN D3 [Concomitant]
     Active Substance: CHOLECALCIFEROL
  6. MEGA RED KRILL OIL [Concomitant]
     Dosage: UNK
     Dates: start: 201611
  7. COENZYME Q10 [Concomitant]
     Active Substance: UBIDECARENONE
     Dosage: UNK, 1X/DAY
     Route: 048

REACTIONS (6)
  - Chest discomfort [Not Recovered/Not Resolved]
  - Dyspnoea [Recovered/Resolved]
  - Blood pressure increased [Not Recovered/Not Resolved]
  - Ventricular extrasystoles [Not Recovered/Not Resolved]
  - Asthenia [Recovered/Resolved]
  - Somnolence [Recovered/Resolved]

NARRATIVE: CASE EVENT DATE: 201606
